FAERS Safety Report 15202691 (Version 1)
Quarter: 2018Q3

REPORT INFORMATION
  Report Type: Spontaneous
  Country: US (occurrence: US)
  Receive Date: 20180627
  Receipt Date: 20180627
  Transmission Date: 20181010
  Serious: Yes (Other)
  Sender: FDA-Public Use
  Company Number: None

PATIENT
  Age: 71 Year
  Weight: 99 kg

DRUGS (14)
  1. VOTRIENT [Suspect]
     Active Substance: PAZOPANIB HYDROCHLORIDE
     Indication: RENAL CANCER METASTATIC
     Route: 048
     Dates: start: 20180309, end: 20180627
  2. ENOXAPARIN [Concomitant]
     Active Substance: ENOXAPARIN
  3. FLAXSEED [Concomitant]
     Active Substance: FLAX SEED
  4. MORPHINE [Concomitant]
     Active Substance: MORPHINE
  5. TRAMADOL. [Concomitant]
     Active Substance: TRAMADOL
  6. ECONAZOLE [Concomitant]
     Active Substance: ECONAZOLE
  7. CYANOCOBALAMIN. [Concomitant]
     Active Substance: CYANOCOBALAMIN
  8. CALCIUM + D [Concomitant]
     Active Substance: CALCIUM\VITAMIN D
  9. DOCUSATE [Concomitant]
     Active Substance: DOCUSATE
  10. SENNA [Concomitant]
     Active Substance: SENNA LEAF\SENNOSIDES\SENNOSIDES A AND B
  11. FENTANYL. [Concomitant]
     Active Substance: FENTANYL
  12. NYSTATIN. [Concomitant]
     Active Substance: NYSTATIN
  13. ONDANSETRON [Concomitant]
     Active Substance: ONDANSETRON
  14. VITAMIN D [Concomitant]
     Active Substance: CHOLECALCIFEROL

REACTIONS (3)
  - Drug intolerance [None]
  - Disease progression [None]
  - Toxicity to various agents [None]
